FAERS Safety Report 10208601 (Version 1)
Quarter: 2014Q2

REPORT INFORMATION
  Report Type: Spontaneous
  Country: US (occurrence: None)
  Receive Date: 20140528
  Receipt Date: 20140528
  Transmission Date: 20141212
  Serious: No
  Sender: FDA-Public Use
  Company Number: None

PATIENT
  Age: 81 Year
  Sex: Male

DRUGS (4)
  1. ZYTIGA 250 MG JANSSEN BIOTECH [Suspect]
     Indication: PROSTATE CANCER
     Route: 048
     Dates: start: 20140103
  2. NORVASC [Concomitant]
  3. PREDNISONE [Concomitant]
  4. LUPRON [Concomitant]

REACTIONS (2)
  - Sensitivity of teeth [None]
  - Toothache [None]
